FAERS Safety Report 17810612 (Version 4)
Quarter: 2020Q4

REPORT INFORMATION
  Report Type: Spontaneous
  Country: JP (occurrence: JP)
  Receive Date: 20200521
  Receipt Date: 20201014
  Transmission Date: 20210113
  Serious: Yes (Hospitalization, Other)
  Sender: FDA-Public Use
  Company Number: NVSJ2020JP005085

PATIENT

DRUGS (3)
  1. ZYKADIA [Suspect]
     Active Substance: CERITINIB
     Dosage: 150 MG
     Route: 048
  2. ZYKADIA [Suspect]
     Active Substance: CERITINIB
     Dosage: 300 MG
     Route: 048
  3. ZYKADIA [Suspect]
     Active Substance: CERITINIB
     Indication: LUNG NEOPLASM MALIGNANT
     Dosage: 300 MG
     Route: 048
     Dates: start: 20200318

REACTIONS (4)
  - Lung neoplasm malignant [Unknown]
  - Hepatic function abnormal [Recovered/Resolved]
  - Hypokalaemia [Unknown]
  - Malignant neoplasm progression [Unknown]
